FAERS Safety Report 25233131 (Version 1)
Quarter: 2025Q2

REPORT INFORMATION
  Report Type: Report from Study
  Country: US (occurrence: US)
  Receive Date: 20250424
  Receipt Date: 20250424
  Transmission Date: 20250716
  Serious: Yes (Other)
  Sender: BAYER HEALTHCARE PHARMACEUTICALS INC.
  Company Number: US-BAYER-2025A043024

PATIENT
  Age: 50 Year
  Sex: Male

DRUGS (2)
  1. STIVARGA [Suspect]
     Active Substance: REGORAFENIB MONOHYDRATE
     Indication: Cholangiocarcinoma
     Dosage: 160 MG, QD
     Route: 048
     Dates: start: 20250207
  2. STIVARGA [Suspect]
     Active Substance: REGORAFENIB MONOHYDRATE
     Indication: Cholangiocarcinoma
     Dosage: 80 MG, QD FOR 21 DAYS OF TREATMENT
     Route: 048

REACTIONS (8)
  - Gait inability [Recovering/Resolving]
  - Skin graft [Recovering/Resolving]
  - Pain in extremity [Recovering/Resolving]
  - Skin exfoliation [Recovering/Resolving]
  - Mass [Recovering/Resolving]
  - Dyschezia [Recovering/Resolving]
  - Product use in unapproved indication [None]
  - Drug intolerance [Not Recovered/Not Resolved]
